FAERS Safety Report 8956488 (Version 3)
Quarter: 2013Q1

REPORT INFORMATION
  Report Type: Spontaneous
  Country: US (occurrence: US)
  Receive Date: 20121210
  Receipt Date: 20130118
  Transmission Date: 20140127
  Serious: Yes (Hospitalization, Other)
  Sender: FDA-Public Use
  Company Number: US-PFIZER INC-2012307785

PATIENT
  Age: 64 Year
  Sex: Female
  Weight: 48.07 kg

DRUGS (5)
  1. DILANTIN [Suspect]
     Indication: CONVULSION
     Dosage: 50 MG, 3X/DAY
     Dates: start: 2012
  2. DILANTIN [Suspect]
     Dosage: 50 MG, 2X/DAY
  3. LIPITOR [Suspect]
     Dosage: 40 MG, DAILY AT BED TIME
     Dates: start: 2012
  4. PROTONIX [Suspect]
     Indication: GASTRIC DISORDER
     Dosage: 40 MG, DAILY IN THE MORNING
     Dates: start: 2012
  5. ATIVAN [Suspect]
     Indication: DEPRESSION
     Dosage: UNK

REACTIONS (13)
  - Drug ineffective [Unknown]
  - Malaise [Unknown]
  - Vomiting [Unknown]
  - Diarrhoea [Unknown]
  - Bedridden [Unknown]
  - Anticonvulsant drug level decreased [Recovering/Resolving]
  - Hypovitaminosis [Recovering/Resolving]
  - Blood albumin decreased [Recovering/Resolving]
  - Heart rate decreased [Unknown]
  - Feeling abnormal [Unknown]
  - Headache [Unknown]
  - Inappropriate schedule of drug administration [Unknown]
  - Weight decreased [Recovering/Resolving]
